FAERS Safety Report 23902383 (Version 1)
Quarter: 2024Q2

REPORT INFORMATION
  Report Type: Spontaneous
  Country: IT (occurrence: IT)
  Receive Date: 20240527
  Receipt Date: 20240527
  Transmission Date: 20240716
  Serious: Yes (Other)
  Sender: FDA-Public Use
  Company Number: IT-ALKEM LABORATORIES LIMITED-IT-ALKEM-2024-10539

PATIENT
  Age: 44 Year
  Sex: Male

DRUGS (2)
  1. VANCOMYCIN [Suspect]
     Active Substance: VANCOMYCIN
     Indication: Central nervous system infection
     Dosage: UNK
     Route: 065
  2. CEFTAROLINE [Suspect]
     Active Substance: CEFTAROLINE
     Indication: Central nervous system infection
     Dosage: 600 MILLIGRAM, TID
     Route: 065

REACTIONS (1)
  - Drug resistance [Unknown]
